FAERS Safety Report 12980440 (Version 2)
Quarter: 2016Q4

REPORT INFORMATION
  Report Type: Spontaneous
  Country: US (occurrence: US)
  Receive Date: 20161128
  Receipt Date: 20161202
  Transmission Date: 20170207
  Serious: Yes (Other)
  Sender: FDA-Public Use
  Company Number: US-CELGENEUS-USA-2016116164

PATIENT
  Age: 80 Year
  Sex: Female
  Weight: 93.52 kg

DRUGS (1)
  1. OTEZLA [Suspect]
     Active Substance: APREMILAST
     Indication: PSORIASIS
     Dosage: 30MG
     Route: 048
     Dates: start: 20160226

REACTIONS (4)
  - Drug ineffective [Unknown]
  - Hepatic mass [Unknown]
  - Oedema peripheral [Unknown]
  - Psoriasis [Unknown]

NARRATIVE: CASE EVENT DATE: 201609
